FAERS Safety Report 15541538 (Version 1)
Quarter: 2018Q4

REPORT INFORMATION
  Report Type: Spontaneous
  Country: DE (occurrence: DE)
  Receive Date: 20181023
  Receipt Date: 20181023
  Transmission Date: 20190205
  Serious: Yes (Death, Other)
  Sender: FDA-Public Use
  Company Number: DE-GLAXOSMITHKLINE-DE2018GSK177133

PATIENT
  Age: 50 Year
  Sex: Female
  Weight: 105 kg

DRUGS (1)
  1. CEFUROXIM-RATIOPHARM [Suspect]
     Active Substance: CEFUROXIME
     Indication: PRODUCT USED FOR UNKNOWN INDICATION
     Dosage: UNK (1500 MG)
     Route: 042

REACTIONS (2)
  - Anaphylactic reaction [Fatal]
  - Brain injury [Fatal]

NARRATIVE: CASE EVENT DATE: 20180809
